FAERS Safety Report 7800093-5 (Version None)
Quarter: 2011Q4

REPORT INFORMATION
  Report Type: 
  Country: None (occurrence: None)
  Receive Date: 20111006
  Receipt Date: 20110928
  Transmission Date: 20120403
  Serious: Yes (Hospitalization)
  Sender: FDA-Public Use
  Company Number: GB-JNJFOC-20110911496

PATIENT
  Sex: Male

DRUGS (2)
  1. RAMIPRIL [Concomitant]
     Indication: HYPERTENSION
     Route: 065
  2. STELARA [Suspect]
     Indication: PSORIASIS
     Route: 058

REACTIONS (1)
  - HYPERTENSION [None]
